FAERS Safety Report 24259107 (Version 1)
Quarter: 2024Q3

REPORT INFORMATION
  Report Type: Spontaneous
  Country: US (occurrence: None)
  Receive Date: 20240827
  Receipt Date: 20240827
  Transmission Date: 20241016
  Serious: Yes (Death)
  Sender: Public
  Company Number: None

PATIENT
  Age: 52 Year
  Sex: Female

DRUGS (1)
  1. XGEVA [Suspect]
     Active Substance: DENOSUMAB
     Dosage: FREQUENCY : MONTHLY;?
     Route: 058
     Dates: start: 202404

REACTIONS (1)
  - Disease progression [None]

NARRATIVE: CASE EVENT DATE: 20240822
